FAERS Safety Report 5252645-7 (Version None)
Quarter: 2007Q1

REPORT INFORMATION
  Report Type: 
  Country: None (occurrence: None)
  Receive Date: 20070301
  Receipt Date: 20061113
  Transmission Date: 20070707
  Serious: Yes (Other)
  Sender: FDA-Public Use
  Company Number: US-GLAXOSMITHKLINE-A0625829A

PATIENT
  Age: 63 Year
  Sex: Female

DRUGS (8)
  1. LAMICTAL [Suspect]
     Indication: BIPOLAR DISORDER
     Dosage: 200MG PER DAY
     Route: 048
     Dates: start: 20051104
  2. NEXIUM [Concomitant]
  3. ZANTAC [Concomitant]
  4. TRAZODONE HCL [Concomitant]
  5. RISPERDAL [Concomitant]
  6. ATIVAN [Concomitant]
  7. ENABLEX [Concomitant]
  8. GLUCOSAMINE CHONDRITIN [Concomitant]

REACTIONS (1)
  - URINARY INCONTINENCE [None]
